FAERS Safety Report 24544570 (Version 1)
Quarter: 2024Q4

REPORT INFORMATION
  Report Type: Spontaneous
  Country: US (occurrence: US)
  Receive Date: 20241024
  Receipt Date: 20241024
  Transmission Date: 20250114
  Serious: No
  Sender: JOHNSON AND JOHNSON
  Company Number: US-JNJFOC-20241042702

PATIENT
  Sex: Male

DRUGS (3)
  1. RISPERDAL [Suspect]
     Active Substance: RISPERIDONE
     Indication: Affective disorder
     Dosage: VARYING DOSES OF 0.25 MG, 0.5 MG AND 1 MG WITH VARYING FREQUENCY OF ONCE, TWICE AND 4 TIMES A DAY
     Route: 048
     Dates: start: 201207
  2. RISPERDAL [Suspect]
     Active Substance: RISPERIDONE
     Indication: Anger
  3. RISPERDAL [Suspect]
     Active Substance: RISPERIDONE
     Indication: Aggression

REACTIONS (4)
  - Overweight [Unknown]
  - Gynaecomastia [Unknown]
  - Drug ineffective [Unknown]
  - Off label use [Unknown]
